FAERS Safety Report 7803727-4 (Version None)
Quarter: 2011Q4

REPORT INFORMATION
  Report Type: 
  Country: None (occurrence: None)
  Receive Date: 20111010
  Receipt Date: 20111004
  Transmission Date: 20120403
  Serious: Yes (Other)
  Sender: FDA-Public Use
  Company Number: US-PFIZER INC-2011237879

PATIENT

DRUGS (1)
  1. DEPO-MEDROL [Suspect]
     Dosage: UNK
     Route: 037

REACTIONS (3)
  - INCORRECT ROUTE OF DRUG ADMINISTRATION [None]
  - BLADDER DYSFUNCTION [None]
  - FUNCTIONAL GASTROINTESTINAL DISORDER [None]
